FAERS Safety Report 8065916-6 (Version None)
Quarter: 2012Q1

REPORT INFORMATION
  Report Type: 
  Country: None (occurrence: None)
  Receive Date: 20120124
  Receipt Date: 20120112
  Transmission Date: 20120608
  Serious: Yes (Hospitalization)
  Sender: FDA-Public Use
  Company Number: FR-ELI_LILLY_AND_COMPANY-FR201201003426

PATIENT
  Age: 56 Year
  Sex: Female

DRUGS (3)
  1. ZYPREXA [Suspect]
     Indication: PSYCHOTIC DISORDER
     Dosage: 5 MG, UNK
     Route: 048
     Dates: start: 20111019, end: 20111104
  2. VALPROIC ACID [Concomitant]
     Indication: PSYCHOTIC DISORDER
     Dosage: 300 MG, QOD
     Route: 048
     Dates: start: 20111020, end: 20111104
  3. RISPERDAL [Concomitant]
     Dosage: 2 MG, UNK
     Route: 048
     Dates: start: 20080101, end: 20111018

REACTIONS (1)
  - DEEP VEIN THROMBOSIS [None]
